FAERS Safety Report 9030664 (Version 1)
Quarter: 2013Q1

REPORT INFORMATION
  Report Type: Spontaneous
  Country: FR (occurrence: FR)
  Receive Date: 20130123
  Receipt Date: 20130123
  Transmission Date: 20140127
  Serious: Yes (Hospitalization)
  Sender: FDA-Public Use
  Company Number: FR-ASTRAZENECA-2013SE03912

PATIENT
  Age: 20095 Day
  Sex: Female

DRUGS (6)
  1. MOPRAL [Suspect]
     Indication: GASTRODUODENAL ULCER
     Route: 048
     Dates: end: 201210
  2. ABILIFY [Suspect]
     Indication: PSYCHOTIC DISORDER
     Route: 065
  3. RISPERDAL [Suspect]
     Indication: PSYCHOTIC DISORDER
     Route: 048
     Dates: start: 2012, end: 201210
  4. LAROXYL [Suspect]
     Indication: DEPRESSION
     Route: 048
     Dates: end: 201210
  5. AKINETON [Suspect]
     Route: 048
     Dates: end: 201210
  6. HEPT A MYL [Suspect]
     Indication: HYPERTENSION
     Route: 065
     Dates: end: 201210

REACTIONS (5)
  - Enterocolitis haemorrhagic [Recovered/Resolved]
  - Hypokalaemia [Unknown]
  - Intestinal obstruction [Unknown]
  - Interstitial lung disease [Unknown]
  - Adrenal mass [Unknown]
